APPROVED DRUG PRODUCT: BENDOPA
Active Ingredient: LEVODOPA
Strength: 500MG
Dosage Form/Route: CAPSULE;ORAL
Application: N016948 | Product #002
Applicant: VALEANT PHARMACEUTICALS INTERNATIONAL
Approved: Approved Prior to Jan 1, 1982 | RLD: No | RS: No | Type: DISCN